FAERS Safety Report 8217021 (Version 3)
Quarter: 2013Q4

REPORT INFORMATION
  Report Type: Report from Study
  Country: US (occurrence: US)
  Receive Date: 20111101
  Receipt Date: 20131113
  Transmission Date: 20140711
  Serious: Yes (Hospitalization)
  Sender: FDA-Public Use
  Company Number: US-BAYER-2011-103290

PATIENT
  Age: 73 Year
  Sex: Male
  Weight: 96.15 kg

DRUGS (34)
  1. SORAFENIB (RAF KINASE INHIBITOR) [Suspect]
     Indication: THYROID CANCER METASTATIC
     Dosage: UNK
     Route: 048
     Dates: start: 20110210
  2. SORAFENIB (RAF KINASE INHIBITOR) [Suspect]
     Indication: THYROID CANCER METASTATIC
     Dosage: 600 MG DAILY (200 MG QD + 200 MG BID)
     Route: 048
     Dates: start: 20110922
  3. PLACEBO (14295) [Suspect]
     Indication: THYROID CANCER METASTATIC
     Dosage: UNK
     Route: 048
     Dates: start: 20100603, end: 20110209
  4. ASPIRIN [Concomitant]
     Indication: SUPPLEMENTATION THERAPY
     Dosage: DAILY DOSE: 81 MG
     Route: 048
     Dates: start: 2000
  5. CALCIUM D [Concomitant]
     Indication: HYPOCALCAEMIA
     Dosage: 2 TABLETS DAILY (500-400 MG UNIT)
     Route: 048
     Dates: start: 200806
  6. DIOVAN HCT [Concomitant]
     Indication: HYPERTENSION
     Dosage: 160 MG-25MG
     Route: 048
     Dates: start: 1995
  7. DOXAZOSIN MESYLATE [Concomitant]
     Indication: BENIGN PROSTATIC HYPERPLASIA
     Dosage: DAILY DOSE: 5 MG
     Route: 048
     Dates: start: 1994
  8. LEVOTHYROXINE SODIUM [Concomitant]
     Indication: HYPOTHYROIDISM
     Dosage: DAILY DOSE: 150 MCG (ONE TABLET EVERY OTHER DAY)
     Route: 048
     Dates: start: 2007
  9. LEVOTHYROXINE SODIUM [Concomitant]
     Indication: HYPOTHYROIDISM
     Dosage: DAILY DOSE: 175 MCG (ONE TABLET EVERY OTHER DAY)
     Route: 048
     Dates: start: 2007
  10. MULTIVITAMIN [Concomitant]
     Indication: VITAMIN SUPPLEMENTATION
     Dosage: UNK
     Route: 048
     Dates: start: 1971
  11. METFORMIN HYDROCHLORIDE [Concomitant]
     Indication: DIABETES MELLITUS
     Dosage: DAILY DOSE: 500 MG
     Route: 048
     Dates: start: 2008, end: 20100526
  12. METFORMIN HYDROCHLORIDE [Concomitant]
     Indication: DIABETES MELLITUS
     Dosage: DAILY DOSE: 1000 MG
     Route: 048
     Dates: start: 20100527
  13. OMEGA 3 [Concomitant]
     Indication: VITAMIN SUPPLEMENTATION
     Dosage: DAILY DOSE: 1000 MG
     Route: 048
     Dates: start: 1980
  14. PRILOSEC [Concomitant]
     Indication: GASTROOESOPHAGEAL REFLUX DISEASE
     Dosage: UNK UNK, PRN
     Route: 048
     Dates: start: 2009
  15. SAW PALMETTO [Concomitant]
     Indication: SUPPLEMENTATION THERAPY
     Dosage: DAILY DOSE: 1000 MG
     Route: 048
     Dates: start: 1995
  16. TESTOSTERONE [Concomitant]
     Indication: ORGANIC ERECTILE DYSFUNCTION
     Dosage: DAILY DOSE: 7 GM
     Route: 061
     Dates: start: 2009
  17. GINGER [Concomitant]
     Indication: NAUSEA
     Dosage: UNK
     Route: 048
     Dates: start: 20100630
  18. TYLENOL [PARACETAMOL] [Concomitant]
     Indication: PYREXIA
     Dosage: DAILY DOSE: 650 MG
     Route: 048
     Dates: start: 20101025, end: 20101025
  19. COLACE [Concomitant]
     Indication: POST PROCEDURAL CONSTIPATION
     Dosage: DAILY DOSE: 100 MG
     Route: 048
     Dates: start: 20101022, end: 20101022
  20. CIPROFLOXACIN HCL [Concomitant]
     Indication: URINARY TRACT INFECTION
     Dosage: DAILY DOSE: 1000 MG
     Route: 048
     Dates: start: 20101117, end: 20110114
  21. CIPROFLOXACIN HCL [Concomitant]
     Indication: POLLAKIURIA
  22. CIPROFLOXACIN HCL [Concomitant]
     Indication: MICTURITION URGENCY
  23. NAPROXEN [Concomitant]
     Indication: NECK PAIN
     Dosage: DAILY DOSE: 375 MG
     Route: 048
     Dates: start: 20110217, end: 20110217
  24. NAPROXEN [Concomitant]
     Indication: CHEST PAIN
  25. VALIUM [Concomitant]
     Indication: NECK PAIN
     Dosage: DAILY DOSE: 5 MG
     Route: 048
     Dates: start: 20110221, end: 20110221
  26. VALIUM [Concomitant]
     Indication: CHEST PAIN
  27. IMODIUM [Concomitant]
     Indication: DIARRHOEA
     Dosage: DAILY DOSE: 1 MG
     Route: 048
     Dates: start: 20110228
  28. AUGMENTIN [Concomitant]
     Indication: TOOTH IMPACTED
     Dosage: DAILY DOSE: 1750 MG
     Route: 048
     Dates: start: 20110315, end: 20110325
  29. AUGMENTIN [Concomitant]
     Indication: TOOTH ABSCESS
  30. CIPRO [Concomitant]
     Indication: DIVERTICULITIS
     Dosage: DAILY DOSE: 1000 MG
     Route: 048
     Dates: start: 20110317
  31. CIPRO [Concomitant]
     Indication: ABDOMINAL PAIN
  32. FLAGYL [Concomitant]
     Indication: DIVERTICULITIS
     Dosage: DAILY DOSE: 750 MG
     Route: 048
     Dates: start: 20110317
  33. FLAGYL [Concomitant]
     Indication: ABDOMINAL PAIN
  34. POTASSIUM PHOSPHATES [Concomitant]
     Indication: VITAMIN SUPPLEMENTATION
     Dosage: DAILY DOSE 1000MG
     Route: 048
     Dates: start: 20110509

REACTIONS (1)
  - Hypomagnesaemia [Recovered/Resolved]
